FAERS Safety Report 7402577-0 (Version None)
Quarter: 2011Q2

REPORT INFORMATION
  Report Type: 
  Country: None (occurrence: None)
  Receive Date: 20110408
  Receipt Date: 20110331
  Transmission Date: 20111010
  Serious: Yes (Other)
  Sender: FDA-Public Use
  Company Number: US-PFIZER INC-2009296613

PATIENT
  Sex: Male

DRUGS (17)
  1. TRAZODONE HCL [Suspect]
     Dosage: UNK
  2. PRISTIQ [Suspect]
     Indication: DEPRESSION
     Dosage: 50 MG, 1X/DAY
     Route: 048
     Dates: start: 20090316
  3. WELLBUTRIN [Suspect]
     Dosage: UNK
  4. PAROXETINE [Suspect]
     Dosage: UNK
  5. MIRTAZAPINE [Suspect]
     Dosage: UNK
  6. SEROQUEL [Suspect]
     Dosage: UNK
  7. PAXIL [Suspect]
     Dosage: UNK
  8. DEPAKOTE [Suspect]
     Dosage: UNK
  9. FISH OIL [Concomitant]
     Dosage: UNK
  10. DOXEPIN HCL [Suspect]
     Dosage: UNK
  11. LEXAPRO [Suspect]
     Dosage: UNK
  12. EFFEXOR XR [Suspect]
     Indication: DEPRESSION
     Dosage: 75 MG, 1X/DAY
     Route: 048
     Dates: start: 19930101
  13. CYMBALTA [Suspect]
     Dosage: UNK
  14. VITAMINS [Concomitant]
     Dosage: UNK
  15. ZOLOFT [Suspect]
     Dosage: UNK
  16. PROZAC [Suspect]
     Dosage: UNK
  17. ZYPREXA [Suspect]
     Dosage: UNK

REACTIONS (13)
  - TREMOR [None]
  - SUICIDE ATTEMPT [None]
  - CONSTIPATION [None]
  - AGEUSIA [None]
  - DYSKINESIA [None]
  - DIVERTICULITIS [None]
  - DRUG INEFFECTIVE [None]
  - DRUG EFFECT DECREASED [None]
  - DIARRHOEA [None]
  - NIGHTMARE [None]
  - DRY MOUTH [None]
  - DECREASED APPETITE [None]
  - MUSCLE TWITCHING [None]
